FAERS Safety Report 21687477 (Version 1)
Quarter: 2022Q4

REPORT INFORMATION
  Report Type: Other
  Country: DE (occurrence: None)
  Receive Date: 20221206
  Receipt Date: 20221206
  Transmission Date: 20230112
  Serious: No
  Sender: FDA-Public Use
  Company Number: DE-ROCHE-3128762

PATIENT
  Age: 50 Year
  Sex: Female
  Weight: 74 kg

DRUGS (4)
  1. OCRELIZUMAB [Suspect]
     Active Substance: OCRELIZUMAB
     Indication: Relapsing multiple sclerosis
     Route: 042
     Dates: start: 20211117, end: 20211201
  2. OCRELIZUMAB [Suspect]
     Active Substance: OCRELIZUMAB
     Route: 042
     Dates: start: 20220601
  3. MOXONIDINE [Concomitant]
     Active Substance: MOXONIDINE
     Indication: Hypertension
     Route: 048
  4. TELMISARTAN [Concomitant]
     Active Substance: TELMISARTAN
     Indication: Hypertension
     Route: 048

REACTIONS (12)
  - Dyspnoea [Recovered/Resolved]
  - Dizziness [Recovered/Resolved]
  - Coronavirus infection [Recovered/Resolved]
  - Cough [Recovered/Resolved]
  - Cough [Not Recovered/Not Resolved]
  - Nasopharyngitis [Not Recovered/Not Resolved]
  - Nasopharyngitis [Recovered/Resolved]
  - Skin exfoliation [Not Recovered/Not Resolved]
  - Skin fissures [Not Recovered/Not Resolved]
  - Sleep disorder [Not Recovered/Not Resolved]
  - Bundle branch block left [Not Recovered/Not Resolved]
  - Asthma [Not Recovered/Not Resolved]

NARRATIVE: CASE EVENT DATE: 20211201
